FAERS Safety Report 5589419-3 (Version None)
Quarter: 2008Q1

REPORT INFORMATION
  Report Type: 
  Country: None (occurrence: None)
  Receive Date: 20080114
  Receipt Date: 20080108
  Transmission Date: 20080703
  Serious: Yes (Other)
  Sender: FDA-Public Use
  Company Number: CH-BRISTOL-MYERS SQUIBB COMPANY-14037717

PATIENT
  Age: 64 Year
  Sex: Female

DRUGS (11)
  1. MITOMYCIN [Suspect]
     Route: 033
     Dates: start: 20070901, end: 20070901
  2. PARACETAMOL [Suspect]
     Dates: start: 20070927
  3. CISPLATIN [Suspect]
  4. NEXIUM [Suspect]
     Route: 048
     Dates: end: 20071024
  5. TIENAM [Concomitant]
     Route: 042
     Dates: start: 20071007, end: 20071016
  6. DROPERIDOL [Concomitant]
     Route: 048
     Dates: start: 20070930, end: 20071009
  7. PASPERTIN [Concomitant]
     Dates: start: 20071003
  8. CLEXANE [Concomitant]
     Route: 058
  9. LEXOTANIL [Concomitant]
     Route: 048
  10. TENORMIN [Concomitant]
     Route: 048
  11. ELTROXIN [Concomitant]
     Route: 048

REACTIONS (4)
  - CHOLESTASIS [None]
  - JAUNDICE CHOLESTATIC [None]
  - MALIGNANT NEOPLASM PROGRESSION [None]
  - PANCREATIC ENZYMES INCREASED [None]
